FAERS Safety Report 7199987-6 (Version None)
Quarter: 2010Q4

REPORT INFORMATION
  Report Type: 
  Country: None (occurrence: None)
  Receive Date: 20101228
  Receipt Date: 20101210
  Transmission Date: 20110411
  Serious: Yes (Other)
  Sender: FDA-Public Use
  Company Number: PHHY2010FR87044

PATIENT
  Weight: 2.33 kg

DRUGS (2)
  1. SANDOSTATIN LAR [Suspect]
     Indication: ACROMEGALY
     Dosage: 20 MG, UNK
     Route: 064
     Dates: start: 19981101
  2. SANDOSTATIN LAR [Suspect]
     Dosage: 30 MG, UNK
     Route: 064
     Dates: end: 19990401

REACTIONS (4)
  - DRUG EXPOSURE DURING PREGNANCY [None]
  - SMALL FOR DATES BABY [None]
  - TACHYCARDIA FOETAL [None]
  - ULTRASOUND DOPPLER ABNORMAL [None]
